FAERS Safety Report 10359153 (Version 5)
Quarter: 2016Q2

REPORT INFORMATION
  Report Type: Report from Study
  Country: JP (occurrence: JP)
  Receive Date: 20140804
  Receipt Date: 20160401
  Transmission Date: 20160815
  Serious: Yes (Other)
  Sender: FDA-Public Use
  Company Number: PHHY2014JP092413

PATIENT
  Age: 10 Year
  Sex: Male

DRUGS (12)
  1. ACZ885 [Suspect]
     Active Substance: CANAKINUMAB
     Dosage: 128 MG QD
     Route: 058
     Dates: start: 20140724
  2. ACZ885 [Suspect]
     Active Substance: CANAKINUMAB
     Dosage: 8 MG/KG, UNK
     Route: 058
  3. GASTER [Concomitant]
     Active Substance: FAMOTIDINE
     Indication: PROPHYLAXIS
     Dosage: 10 MG, UNK
     Route: 048
     Dates: start: 20130913, end: 20150114
  4. ALLELOCK [Concomitant]
     Active Substance: OLOPATADINE HYDROCHLORIDE
     Indication: PRODUCT USED FOR UNKNOWN INDICATION
     Dosage: 10 MG, UNK
     Route: 048
     Dates: start: 20140225
  5. ACZ885 [Suspect]
     Active Substance: CANAKINUMAB
     Indication: MUCKLE-WELLS SYNDROME
     Dosage: 64 MG, QD
     Route: 058
     Dates: start: 20140225
  6. ACZ885 [Suspect]
     Active Substance: CANAKINUMAB
     Dosage: 2 MG/KG, UNK
     Route: 065
  7. BRUFEN//IBUPROFEN [Concomitant]
     Active Substance: IBUPROFEN
     Indication: MUCKLE-WELLS SYNDROME
     Dosage: UNK
     Route: 048
     Dates: start: 20131018
  8. ONON [Concomitant]
     Active Substance: PRANLUKAST
     Indication: PRODUCT USED FOR UNKNOWN INDICATION
     Dosage: 210 MG, UNK
     Route: 048
     Dates: start: 20140203, end: 20141217
  9. NEXIUM 1-2-3 [Concomitant]
     Active Substance: AMOXICILLIN\CLARITHROMYCIN\ESOMEPRAZOLE
     Indication: PROPHYLAXIS
     Dosage: 10 MG, UNK
     Route: 048
     Dates: start: 20150115
  10. ACZ885 [Suspect]
     Active Substance: CANAKINUMAB
     Dosage: 128 MG, QD
     Route: 058
     Dates: start: 20140408
  11. ACZ885 [Suspect]
     Active Substance: CANAKINUMAB
     Dosage: 128 MG, QD
     Route: 058
     Dates: start: 20140602
  12. CARBOCISTEINE [Concomitant]
     Active Substance: CARBOCYSTEINE
     Indication: PRODUCT USED FOR UNKNOWN INDICATION
     Dosage: 500 MG, UNK
     Route: 048
     Dates: start: 20140811, end: 20141217

REACTIONS (2)
  - Therapeutic response decreased [Unknown]
  - Meningitis [Not Recovered/Not Resolved]

NARRATIVE: CASE EVENT DATE: 20140714
